FAERS Safety Report 25906209 (Version 1)
Quarter: 2025Q4

REPORT INFORMATION
  Report Type: Spontaneous
  Country: US (occurrence: US)
  Receive Date: 20251010
  Receipt Date: 20251010
  Transmission Date: 20260117
  Serious: No
  Sender: BOEHRINGER INGELHEIM
  Company Number: US-Komodo Health-a23aa00000AiNcfAAF

PATIENT
  Sex: Female

DRUGS (1)
  1. COMBIVENT RESPIMAT [Suspect]
     Active Substance: ALBUTEROL SULFATE\IPRATROPIUM BROMIDE
     Indication: Asthma
     Dosage: 3 INHALATIONS DAILY AS NEEDED SEASONALLY

REACTIONS (2)
  - Off label use [Unknown]
  - Intentional product use issue [Unknown]
